FAERS Safety Report 8949797 (Version 2)
Quarter: 2012Q4

REPORT INFORMATION
  Report Type: 
  Country: ES (occurrence: ES)
  Receive Date: 20121206
  Receipt Date: 20121227
  Transmission Date: 20130627
  Serious: Yes (Other)
  Sender: FDA-Public Use
  Company Number: ES-TEVA-372615ISR

PATIENT
  Age: 73 Year
  Sex: Female

DRUGS (8)
  1. VINCRISTINE [Suspect]
     Dosage: part of COP cycle
     Route: 065
  2. FLUDARABINE [Suspect]
     Indication: CHRONIC LYMPHOCYTIC LEUKAEMIA
     Route: 048
     Dates: end: 200412
  3. RITUXIMAB [Suspect]
     Dosage: 375 mg/m3 every 3 months for 7 cycles
     Route: 065
     Dates: end: 200809
  4. RITUXIMAB [Suspect]
     Dosage: weekly
     Route: 065
  5. CYCLOPHOSPHAMIDE [Suspect]
     Dosage: part of COP cycle
     Route: 065
  6. PREDNISONE [Suspect]
     Dosage: part of COP cycle
     Route: 065
  7. METHYLPREDNISOLONE [Concomitant]
     Dosage: 80mg every 24h
     Route: 065
  8. IMMUNE GLOBULIN [Concomitant]
     Route: 042

REACTIONS (2)
  - Progressive multifocal leukoencephalopathy [Not Recovered/Not Resolved]
  - Thrombocytopenia [Unknown]
